FAERS Safety Report 4531637-7 (Version None)
Quarter: 2004Q4

REPORT INFORMATION
  Report Type: 
  Country: None (occurrence: None)
  Receive Date: 20041217
  Receipt Date: 20041217
  Transmission Date: 20050328
  Serious: No
  Sender: FDA-Public Use
  Company Number: None

PATIENT
  Age: 42 Year
  Sex: Female
  Weight: 65.7716 kg

DRUGS (3)
  1. BEXTRA [Suspect]
     Indication: ARTHRITIS
     Dosage: AS NEEDED
  2. BEXTRA [Suspect]
     Indication: INTERVERTEBRAL DISC PROTRUSION
     Dosage: AS NEEDED
  3. BEXTRA [Suspect]
     Indication: SPINAL DISORDER
     Dosage: AS NEEDED

REACTIONS (4)
  - AURICULAR SWELLING [None]
  - RASH [None]
  - SWELLING FACE [None]
  - URTICARIA [None]
